FAERS Safety Report 9788686 (Version 3)
Quarter: 2014Q1

REPORT INFORMATION
  Report Type: Report from Study
  Country: MX (occurrence: MX)
  Receive Date: 20131230
  Receipt Date: 20140311
  Transmission Date: 20141002
  Serious: Yes (Hospitalization)
  Sender: FDA-Public Use
  Company Number: MX-BAYER-2013-157568

PATIENT
  Age: 76 Year
  Sex: Female
  Weight: 52 kg

DRUGS (5)
  1. REGORAFENIB [Suspect]
     Indication: COLON CANCER METASTATIC
     Dosage: 160 MG, QD
     Route: 048
     Dates: start: 20131026, end: 20131115
  2. MELOX [Concomitant]
     Indication: MUCOSAL INFLAMMATION
     Dosage: 5 MG DAILY
     Route: 048
     Dates: start: 20131112, end: 20131216
  3. MESTREL [Concomitant]
     Indication: UNEVALUABLE EVENT
     Dosage: 160 MG DAILY
     Route: 048
     Dates: start: 20131112, end: 20131216
  4. OMEPRAZOL [Concomitant]
     Indication: GASTRITIS
     Dosage: 20 MG DAILY
     Route: 048
     Dates: start: 20130906, end: 20131216
  5. TRAMADOL [Concomitant]
     Indication: PAIN
     Dosage: 150 MG DAILY
     Route: 048
     Dates: start: 20131115, end: 20131216

REACTIONS (1)
  - Hepatic failure [Not Recovered/Not Resolved]
